FAERS Safety Report 8107513-X (Version None)
Quarter: 2012Q1

REPORT INFORMATION
  Report Type: 
  Country: None (occurrence: None)
  Receive Date: 20120202
  Receipt Date: 20120120
  Transmission Date: 20120608
  Serious: Yes (Other)
  Sender: FDA-Public Use
  Company Number: US-ROCHE-1021116

PATIENT
  Sex: Male

DRUGS (4)
  1. PEGASYS [Suspect]
     Indication: HEPATITIS C
     Route: 058
     Dates: start: 20111206
  2. INCIVEK [Suspect]
     Indication: HEPATITIS C
     Dates: start: 20111206
  3. RIBAVIRIN [Suspect]
     Indication: HEPATITIS C
     Dosage: DIVIDED DOSES (400/600)
     Route: 048
  4. CALTRATE [Concomitant]

REACTIONS (6)
  - HEADACHE [None]
  - VOMITING [None]
  - INJECTION SITE REACTION [None]
  - PHOTOPHOBIA [None]
  - ANORECTAL DISCOMFORT [None]
  - BLOOD CALCIUM DECREASED [None]
